FAERS Safety Report 4336965-6 (Version None)
Quarter: 2004Q2

REPORT INFORMATION
  Report Type: 
  Country: None (occurrence: None)
  Receive Date: 20040408
  Receipt Date: 20040326
  Transmission Date: 20050107
  Serious: Yes (Hospitalization, Other)
  Sender: FDA-Public Use
  Company Number: 2004021125

PATIENT
  Age: 64 Year
  Sex: Female

DRUGS (2)
  1. RENESE [Suspect]
     Indication: HYPERTENSION
     Dosage: 2 MG (DAILY), ORAL
     Route: 048
     Dates: end: 20040301
  2. FUROSEMIDE [Concomitant]

REACTIONS (8)
  - ATRIAL FIBRILLATION [None]
  - CARDIAC DISORDER [None]
  - CARDIAC FAILURE CONGESTIVE [None]
  - FATIGUE [None]
  - GOUT [None]
  - MYOCARDIAL INFARCTION [None]
  - PULMONARY OEDEMA [None]
  - WEIGHT INCREASED [None]
